FAERS Safety Report 9166113 (Version 2)
Quarter: 2013Q3

REPORT INFORMATION
  Report Type: Report from Study
  Country: US (occurrence: US)
  Receive Date: 20130315
  Receipt Date: 20130729
  Transmission Date: 20140515
  Serious: Yes (Hospitalization)
  Sender: FDA-Public Use
  Company Number: US-B.I. PHARMACEUTICALS,INC./RIDGEFIELD-2013-RU-00235BP

PATIENT
  Age: 83 Year
  Sex: Male
  Weight: 88.1 kg

DRUGS (6)
  1. PRADAXA [Suspect]
     Indication: CEREBROVASCULAR ACCIDENT PROPHYLAXIS
     Dates: start: 20130125, end: 20130220
  2. PRADAXA [Suspect]
     Indication: ATRIAL FIBRILLATION
  3. TRIAL PROCEDURE [Suspect]
     Indication: CEREBROVASCULAR ACCIDENT PROPHYLAXIS
  4. TRIAL PROCEDURE [Suspect]
     Indication: ATRIAL FIBRILLATION
  5. ASPIRIN [Concomitant]
     Indication: CORONARY ARTERY DISEASE
     Dosage: 81 MG
     Route: 048
  6. CILOSTAZOL [Concomitant]
     Indication: PERIPHERAL VASCULAR DISORDER
     Dosage: 100 MG
     Route: 048

REACTIONS (2)
  - Haemorrhagic anaemia [Not Recovered/Not Resolved]
  - Gastritis erosive [Unknown]
